FAERS Safety Report 8630814 (Version 4)
Quarter: 2013Q3

REPORT INFORMATION
  Report Type: Report from Study
  Country: FR (occurrence: FR)
  Receive Date: 20120622
  Receipt Date: 20130710
  Transmission Date: 20140515
  Serious: Yes (Life-Threatening, Hospitalization)
  Sender: FDA-Public Use
  Company Number: FR-CELGENEUS-056-C5013-12062269

PATIENT
  Age: 80 Year
  Sex: Male
  Weight: 87 kg

DRUGS (5)
  1. CC-5013 [Suspect]
     Indication: PLASMA CELL MYELOMA
     Dosage: 25 MILLIGRAM
     Route: 048
     Dates: start: 20090410
  2. CC-5013 [Suspect]
     Dosage: 25 MILLIGRAM
     Route: 048
     Dates: end: 20100826
  3. DEXAMETHASONE [Suspect]
     Indication: PLASMA CELL MYELOMA
     Dosage: 40 MILLIGRAM
     Route: 065
     Dates: start: 20090410
  4. DEXAMETHASONE [Suspect]
     Dosage: 20 MILLIGRAM
     Route: 065
     Dates: end: 20100809
  5. LOVENOX [Concomitant]
     Indication: THROMBOSIS PROPHYLAXIS
     Dosage: 1.4 MILLILITER
     Route: 058

REACTIONS (1)
  - Lung squamous cell carcinoma stage II [Not Recovered/Not Resolved]
